FAERS Safety Report 9454468 (Version 1)
Quarter: 2013Q3

REPORT INFORMATION
  Report Type: Spontaneous
  Country: RU (occurrence: RU)
  Receive Date: 20130812
  Receipt Date: 20130812
  Transmission Date: 20140515
  Serious: Yes (Other)
  Sender: FDA-Public Use
  Company Number: RU-AMGEN-RUSSP2013055379

PATIENT
  Sex: 0

DRUGS (30)
  1. VECTIBIX [Suspect]
     Indication: COLORECTAL CANCER METASTATIC
     Dosage: 6 MG/KG BY DROP INFUSION EVERY 2 WEEKS
     Route: 042
  2. VECTIBIX [Suspect]
     Indication: COLON CANCER
  3. VECTIBIX [Suspect]
     Indication: RECTAL CANCER
  4. 5-FU                               /00098801/ [Concomitant]
     Indication: COLORECTAL CANCER METASTATIC
     Dosage: UNK
  5. 5-FU                               /00098801/ [Concomitant]
     Indication: COLON CANCER
  6. 5-FU                               /00098801/ [Concomitant]
     Indication: RECTAL CANCER
  7. CAPECITABINE [Concomitant]
     Indication: COLORECTAL CANCER METASTATIC
     Dosage: UNK
  8. CAPECITABINE [Concomitant]
     Indication: COLON CANCER
  9. CAPECITABINE [Concomitant]
     Indication: RECTAL CANCER
  10. OXALIPLATIN [Concomitant]
     Indication: COLORECTAL CANCER METASTATIC
     Dosage: UNK
  11. OXALIPLATIN [Concomitant]
     Indication: COLON CANCER
  12. OXALIPLATIN [Concomitant]
     Indication: RECTAL CANCER
  13. IRINOTECAN [Concomitant]
     Indication: COLORECTAL CANCER METASTATIC
     Dosage: UNK
  14. IRINOTECAN [Concomitant]
     Indication: COLON CANCER
  15. IRINOTECAN [Concomitant]
     Indication: RECTAL CANCER
  16. LEUCOVORIN                         /00566701/ [Concomitant]
     Indication: COLORECTAL CANCER METASTATIC
     Dosage: UNK
  17. LEUCOVORIN                         /00566701/ [Concomitant]
     Indication: COLON CANCER
  18. LEUCOVORIN                         /00566701/ [Concomitant]
     Indication: RECTAL CANCER
  19. BEVACIZUMAB [Concomitant]
     Indication: COLORECTAL CANCER METASTATIC
     Dosage: UNK
  20. BEVACIZUMAB [Concomitant]
     Indication: COLON CANCER
  21. BEVACIZUMAB [Concomitant]
     Indication: RECTAL CANCER
  22. AFLIBERCEPT [Concomitant]
     Indication: COLORECTAL CANCER METASTATIC
     Dosage: UNK
  23. AFLIBERCEPT [Concomitant]
     Indication: COLON CANCER
  24. AFLIBERCEPT [Concomitant]
     Indication: RECTAL CANCER
  25. MITOMYCIN C [Concomitant]
     Indication: COLORECTAL CANCER METASTATIC
     Dosage: UNK
  26. MITOMYCIN C [Concomitant]
     Indication: COLON CANCER
  27. MITOMYCIN C [Concomitant]
     Indication: RECTAL CANCER
  28. TOMUDEX                            /01320701/ [Concomitant]
     Indication: COLORECTAL CANCER METASTATIC
     Dosage: UNK
  29. TOMUDEX                            /01320701/ [Concomitant]
     Indication: COLON CANCER
  30. TOMUDEX                            /01320701/ [Concomitant]
     Indication: RECTAL CANCER

REACTIONS (10)
  - Skin toxicity [Unknown]
  - Dermatitis acneiform [Unknown]
  - Erythema [Unknown]
  - Paronychia [Unknown]
  - Hypomagnesaemia [Unknown]
  - Xerosis [Unknown]
  - Abdominal pain upper [Unknown]
  - Diarrhoea [Unknown]
  - Asthenia [Unknown]
  - Hypersensitivity [Unknown]
